FAERS Safety Report 4966826-0 (Version None)
Quarter: 2006Q2

REPORT INFORMATION
  Report Type: 
  Country: None (occurrence: None)
  Receive Date: 20060407
  Receipt Date: 20051123
  Transmission Date: 20061013
  Serious: Yes (Hospitalization, Disabling)
  Sender: FDA-Public Use
  Company Number: US-MERCK-0511USA04074

PATIENT
  Age: 41 Year
  Sex: Female
  Weight: 70 kg

DRUGS (24)
  1. VIOXX [Suspect]
     Indication: RHEUMATOID ARTHRITIS
     Route: 048
     Dates: start: 19991110, end: 20030430
  2. ALBUTEROL [Concomitant]
     Route: 065
  3. ALEVE [Concomitant]
     Route: 065
  4. BIAXIN [Concomitant]
     Route: 065
  5. CEPHALEXIN [Concomitant]
     Route: 065
  6. COUMADIN [Concomitant]
     Route: 065
  7. CYCLOBENZAPRINE HYDROCHLORIDE [Concomitant]
     Route: 065
  8. ENDOCET [Concomitant]
     Route: 065
  9. FOLIC ACID [Concomitant]
     Route: 065
  10. GABAPENTIN [Concomitant]
     Route: 065
  11. ACETAMINOPHEN AND HYDROCODONE BITARTRATE [Concomitant]
     Route: 065
  12. LOTRISONE [Concomitant]
     Route: 065
  13. MEDROXYPROGESTERONE ACETATE [Concomitant]
     Route: 065
  14. MEPROZINE [Concomitant]
     Route: 065
  15. METHOTREXATE [Concomitant]
     Route: 065
  16. METRONIDAZOLE [Concomitant]
     Route: 065
  17. NEURONTIN [Concomitant]
     Route: 065
  18. PERCOCET [Concomitant]
     Route: 065
  19. PREDNISONE [Concomitant]
     Route: 065
  20. PRINCIPEN [Concomitant]
     Route: 065
  21. PROMETHAZINE [Concomitant]
     Route: 065
  22. ACETAMINOPHEN AND PROPOXYPHENE NAPSYLATE [Concomitant]
     Route: 065
  23. WARFARIN [Concomitant]
     Route: 065
  24. ZYBAN [Concomitant]
     Route: 065

REACTIONS (8)
  - ANAEMIA [None]
  - ASTHMA [None]
  - BACTERIAL INFECTION [None]
  - DEEP VEIN THROMBOSIS [None]
  - EYE INFECTION [None]
  - HYSTERECTOMY [None]
  - INFECTION [None]
  - MUSCLE SPASMS [None]
